FAERS Safety Report 4961769-0 (Version None)
Quarter: 2006Q2

REPORT INFORMATION
  Report Type: 
  Country: None (occurrence: None)
  Receive Date: 20060404
  Receipt Date: 20060112
  Transmission Date: 20061013
  Serious: Yes (Death, Hospitalization)
  Sender: FDA-Public Use
  Company Number: PHHO2006JM00947

PATIENT
  Sex: Female
  Weight: 57 kg

DRUGS (1)
  1. GLEEVEC [Suspect]
     Indication: CHRONIC MYELOID LEUKAEMIA
     Dosage: 600 MG, QD
     Route: 048
     Dates: start: 20041001, end: 20051201

REACTIONS (2)
  - CARDIOMYOPATHY [None]
  - MALIGNANT NEOPLASM PROGRESSION [None]
